FAERS Safety Report 23211592 (Version 4)
Quarter: 2024Q1

REPORT INFORMATION
  Report Type: Spontaneous
  Country: CO (occurrence: CO)
  Receive Date: 20231121
  Receipt Date: 20240130
  Transmission Date: 20240409
  Serious: No
  Sender: FDA-Public Use
  Company Number: CO-PFIZER INC-PV202300185699

PATIENT
  Sex: Male

DRUGS (1)
  1. GENOTROPIN [Suspect]
     Active Substance: SOMATROPIN
     Dosage: 1.8 MG
     Route: 058

REACTIONS (5)
  - Incorrect dose administered by device [Unknown]
  - Device mechanical issue [Unknown]
  - Device physical property issue [Unknown]
  - Device information output issue [Unknown]
  - Device leakage [Unknown]
